FAERS Safety Report 11789310 (Version 1)
Quarter: 2015Q4

REPORT INFORMATION
  Report Type: Spontaneous
  Country: US (occurrence: US)
  Receive Date: 20151201
  Receipt Date: 20151201
  Transmission Date: 20160305
  Serious: Yes (Other)
  Sender: FDA-Public Use
  Company Number: US-FRI-1000071936

PATIENT
  Age: 93 Year
  Sex: Male

DRUGS (1)
  1. NAMENDA [Suspect]
     Active Substance: MEMANTINE HYDROCHLORIDE
     Indication: DEMENTIA
     Dosage: 5MG
     Route: 048
     Dates: end: 201408

REACTIONS (1)
  - Dementia [Recovered/Resolved]

NARRATIVE: CASE EVENT DATE: 201409
